FAERS Safety Report 21346480 (Version 2)
Quarter: 2022Q4

REPORT INFORMATION
  Report Type: Spontaneous
  Country: DE (occurrence: DE)
  Receive Date: 20220917
  Receipt Date: 20221006
  Transmission Date: 20230113
  Serious: Yes (Hospitalization, Other)
  Sender: FDA-Public Use
  Company Number: DE-NOVARTISPH-NVSC2022DE209177

PATIENT
  Sex: Female
  Weight: 73 kg

DRUGS (3)
  1. DABRAFENIB [Suspect]
     Active Substance: DABRAFENIB
     Indication: Non-small cell lung cancer
     Dosage: 300 MG, BID (1/2 - 0 ?1/2)
     Route: 048
     Dates: start: 20220721
  2. DABRAFENIB [Suspect]
     Active Substance: DABRAFENIB
     Dosage: 150 MG
     Route: 065
     Dates: start: 20220820
  3. TRAMETINIB [Suspect]
     Active Substance: TRAMETINIB
     Indication: Non-small cell lung cancer
     Dosage: 2 MG, QD (1-0-0)
     Route: 048
     Dates: start: 20220721

REACTIONS (3)
  - Tissue infiltration [Recovered/Resolved]
  - Pyrexia [Recovered/Resolved]
  - Infection [Unknown]

NARRATIVE: CASE EVENT DATE: 20220820
